FAERS Safety Report 18249933 (Version 6)
Quarter: 2020Q4

REPORT INFORMATION
  Report Type: Spontaneous
  Country: AU (occurrence: AU)
  Receive Date: 20200909
  Receipt Date: 20201116
  Transmission Date: 20210113
  Serious: Yes (Hospitalization, Other)
  Sender: FDA-Public Use
  Company Number: AU-MYLANLABS-2020M1076661

PATIENT
  Age: 36 Year
  Sex: Male
  Weight: 86 kg

DRUGS (9)
  1. CITALOPRAM [Concomitant]
     Active Substance: CITALOPRAM HYDROBROMIDE
     Dosage: 20 MILLIGRAM MANE
  2. LITHIUM. [Concomitant]
     Active Substance: LITHIUM
     Dosage: LITHIUM IR 250 MILLIGRAM MANE
  3. LITHIUM. [Concomitant]
     Active Substance: LITHIUM
     Dosage: LITHIUM XR 450 MILLIGRAM NOCTE
  4. CHOLECALCIFEROL [Concomitant]
     Active Substance: CHOLECALCIFEROL
     Dosage: 25 MICROGRAM MANE
  5. CLOZARIL [Suspect]
     Active Substance: CLOZAPINE
     Dosage: UNK
     Dates: start: 20201013, end: 20201014
  6. AMISULPRIDE [Concomitant]
     Active Substance: AMISULPRIDE
     Dosage: 400 MILLIGRAM MANE
  7. CLOZARIL [Suspect]
     Active Substance: CLOZAPINE
     Indication: SCHIZOPHRENIA
     Dosage: UNK
     Route: 048
     Dates: start: 20141212, end: 2014
  8. CLOZARIL [Suspect]
     Active Substance: CLOZAPINE
     Dosage: DAY 12 TITRATION
     Route: 048
     Dates: start: 20141231
  9. QUETIAPINE XR [Concomitant]
     Active Substance: QUETIAPINE
     Dosage: 400 MILLIGRAM NOCTE

REACTIONS (19)
  - Cardiac disorder [Unknown]
  - Troponin increased [Unknown]
  - Lymphocyte count decreased [Unknown]
  - Pyrexia [Unknown]
  - Hospitalisation [Unknown]
  - High density lipoprotein decreased [Unknown]
  - Vitamin D deficiency [Unknown]
  - Non-high-density lipoprotein cholesterol increased [Unknown]
  - Blood creatine phosphokinase decreased [Unknown]
  - Blood cholesterol increased [Unknown]
  - Electrocardiogram QT prolonged [Unknown]
  - Chest pain [Unknown]
  - Low density lipoprotein increased [Unknown]
  - Tachycardia [Unknown]
  - Neutrophil count increased [Unknown]
  - Blood prolactin increased [Unknown]
  - Myocarditis [Unknown]
  - Troponin I increased [Unknown]
  - Blood triglycerides increased [Unknown]

NARRATIVE: CASE EVENT DATE: 2014
